FAERS Safety Report 22190041 (Version 1)
Quarter: 2023Q2

REPORT INFORMATION
  Report Type: Spontaneous
  Country: US (occurrence: US)
  Receive Date: 20230410
  Receipt Date: 20230410
  Transmission Date: 20230721
  Serious: No
  Sender: FDA-Public Use
  Company Number: US-LEO Pharma-351047

PATIENT
  Sex: Female

DRUGS (1)
  1. ADBRY [Suspect]
     Active Substance: TRALOKINUMAB-LDRM
     Indication: Dermatitis atopic
     Dosage: DOSAGE : 300 MG SUBCUTANEOUSLY EVERY TWO WEEKS
     Route: 058
     Dates: start: 202212

REACTIONS (4)
  - Alopecia [Unknown]
  - Drug ineffective [Unknown]
  - Pruritus [Unknown]
  - Hair texture abnormal [Unknown]
